FAERS Safety Report 8238150 (Version 5)
Quarter: 2012Q4

REPORT INFORMATION
  Report Type: 
  Country: NL (occurrence: NL)
  Receive Date: 20111109
  Receipt Date: 20121101
  Transmission Date: 20130627
  Serious: Yes (Other)
  Sender: FDA-Public Use
  Company Number: PHHY2011NL96439

PATIENT
  Age: 60 Year
  Sex: Male

DRUGS (16)
  1. ZOMETA [Suspect]
     Indication: PROSTATE CANCER METASTATIC
     Dosage: 4 mg/ /5ml once per 28 days (IV 350 ml/hour)
     Dates: start: 20110210
  2. ZOMETA [Suspect]
     Dosage: 4 mg/ /5ml once per 28 days (IV 350 ml/hour)
     Dates: start: 20110218
  3. ZOMETA [Suspect]
     Dosage: 4 mg/ /5ml once per 28 days (IV 350 ml/hour)
     Dates: start: 20111006
  4. ZOMETA [Suspect]
     Dosage: 4 mg/ /5ml once per 28 days (IV 350 ml/hour)
     Dates: start: 20111031
  5. ZOMETA [Suspect]
     Dosage: 4 mg/ /5ml once per 28 days (IV 350 ml/hour)
     Dates: start: 20111201
  6. ZOMETA [Suspect]
     Dosage: 4 mg/ /100ml once per 28 days (IV 350 ml/hour)
     Dates: start: 20111228
  7. ZOMETA [Suspect]
     Dosage: 4 mg/ /100ml once per 28 days (IV 320 ml/hour)
     Dates: start: 20120904
  8. ZOMETA [Suspect]
     Dosage: 4 mg/ /100ml once per 28 days (IV 320 ml/hour)
     Dates: start: 20121003
  9. ZOMETA [Suspect]
     Dosage: 4 mg/ /100ml once per 28 days (IV 320 ml/hour)
     Dates: start: 20121030
  10. LUCRIN [Concomitant]
     Dosage: 30 mg, Once every six months
  11. AVODART [Concomitant]
     Dosage: 0.5 mg.Once
  12. CASODEX [Concomitant]
     Dosage: UNK UKN, UNK
  13. CALCIUM D SANDOZ [Concomitant]
     Dosage: 1 DF, (600mg/400IE), QD
  14. ANANDRON [Concomitant]
     Dosage: 150, Once
  15. OXYNORM [Concomitant]
     Dosage: 10 mg, Six times
  16. MORPHINE [Concomitant]
     Dosage: UNK UKN, UNK

REACTIONS (10)
  - Metastases to bone [Unknown]
  - Headache [Not Recovered/Not Resolved]
  - General physical health deterioration [Not Recovered/Not Resolved]
  - Weight decreased [Not Recovered/Not Resolved]
  - Back pain [Not Recovered/Not Resolved]
  - Neck pain [Not Recovered/Not Resolved]
  - Bone pain [Not Recovered/Not Resolved]
  - Gait disturbance [Not Recovered/Not Resolved]
  - Pain [Not Recovered/Not Resolved]
  - Decreased appetite [Not Recovered/Not Resolved]
